FAERS Safety Report 11046746 (Version 1)
Quarter: 2015Q2

REPORT INFORMATION
  Report Type: Spontaneous
  Country: HR (occurrence: HR)
  Receive Date: 20150420
  Receipt Date: 20150420
  Transmission Date: 20150821
  Serious: Yes (Other)
  Sender: FDA-Public Use
  Company Number: HR-ROCHE-1559948

PATIENT
  Age: 32 Year
  Sex: Female

DRUGS (2)
  1. ZELBORAF [Suspect]
     Active Substance: VEMURAFENIB
     Indication: MALIGNANT MELANOMA
     Dosage: THE MOST RECENT DOSE WAS ADMINISTERED ON 17/FEB/2015.
     Route: 048
     Dates: start: 20150210
  2. ZELBORAF [Suspect]
     Active Substance: VEMURAFENIB
     Route: 048

REACTIONS (5)
  - Liver function test abnormal [Recovering/Resolving]
  - Body temperature increased [Recovering/Resolving]
  - Blood count abnormal [Unknown]
  - Rash maculo-papular [Recovering/Resolving]
  - Arthralgia [Recovering/Resolving]

NARRATIVE: CASE EVENT DATE: 20150217
